FAERS Safety Report 13190810 (Version 1)
Quarter: 2017Q1

REPORT INFORMATION
  Report Type: Spontaneous
  Country: AU (occurrence: AU)
  Receive Date: 20170206
  Receipt Date: 20170206
  Transmission Date: 20170428
  Serious: Yes (Disabling, Other)
  Sender: FDA-Public Use
  Company Number: AU-009507513-1701AUS005911

PATIENT
  Sex: Female
  Weight: 59.4 kg

DRUGS (1)
  1. IMPLANON [Suspect]
     Active Substance: ETONOGESTREL
     Dosage: 1 DF, UNK
     Route: 059
     Dates: start: 2013, end: 20160711

REACTIONS (7)
  - Median nerve injury [Not Recovered/Not Resolved]
  - Complication associated with device [Unknown]
  - General anaesthesia [Unknown]
  - Device deployment issue [Recovered/Resolved]
  - Difficulty removing drug implant [Recovered/Resolved]
  - Incorrect drug administration duration [Unknown]
  - Liposuction [Unknown]

NARRATIVE: CASE EVENT DATE: 2016
